FAERS Safety Report 10545302 (Version 2)
Quarter: 2014Q4

REPORT INFORMATION
  Report Type: Spontaneous
  Country: BR (occurrence: BR)
  Receive Date: 20141027
  Receipt Date: 20141110
  Transmission Date: 20150529
  Serious: Yes (Other)
  Sender: FDA-Public Use
  Company Number: PHHY2014BR139968

PATIENT
  Age: 59 Year
  Sex: Female

DRUGS (1)
  1. DIOVAN HCT [Suspect]
     Active Substance: HYDROCHLOROTHIAZIDE\VALSARTAN
     Indication: HYPERTENSION
     Dosage: 1 DF, QD
     Route: 048

REACTIONS (13)
  - Swelling face [Recovered/Resolved]
  - Headache [Not Recovered/Not Resolved]
  - Diabetes mellitus [Recovering/Resolving]
  - Neck pain [Recovered/Resolved]
  - Blood pressure fluctuation [Recovered/Resolved]
  - Aortic arteriosclerosis [Not Recovered/Not Resolved]
  - Oedema peripheral [Recovered/Resolved]
  - Balance disorder [Recovered/Resolved]
  - Vomiting [Recovered/Resolved]
  - Retching [Recovered/Resolved]
  - Lip disorder [Recovered/Resolved]
  - Vision blurred [Recovered/Resolved]
  - Sensory loss [Recovered/Resolved]

NARRATIVE: CASE EVENT DATE: 20141020
